FAERS Safety Report 16469583 (Version 1)
Quarter: 2019Q3

REPORT INFORMATION
  Report Type: Spontaneous
  Country: US (occurrence: US)
  Receive Date: 20190622
  Receipt Date: 20190622
  Transmission Date: 20191004
  Serious: Yes (Other)
  Sender: FDA-Public Use
  Company Number: None

PATIENT
  Age: 54 Year
  Sex: Female

DRUGS (5)
  1. AMLODIPINE [Concomitant]
     Active Substance: AMLODIPINE BESYLATE
  2. MAGNESIUM [Concomitant]
     Active Substance: MAGNESIUM
  3. PREMARIN [Suspect]
     Active Substance: ESTROGENS, CONJUGATED
     Indication: POSTOPERATIVE CARE
     Dosage: ?          QUANTITY:.5 GRAMS;OTHER FREQUENCY:2X/WEEK;?
     Route: 067
     Dates: start: 20190302, end: 20190619
  4. HYDROCHLORITHIAZIDE [Concomitant]
     Active Substance: HYDROCHLOROTHIAZIDE
  5. MILK THISTLE [Concomitant]
     Active Substance: DIETARY SUPPLEMENT\HERBALS\MILK THISTLE

REACTIONS (4)
  - Abdominal tenderness [None]
  - Vulvovaginal swelling [None]
  - Abdominal discomfort [None]
  - Chest pain [None]

NARRATIVE: CASE EVENT DATE: 20190621
